FAERS Safety Report 21295175 (Version 2)
Quarter: 2023Q1

REPORT INFORMATION
  Report Type: Spontaneous
  Country: CA (occurrence: CA)
  Receive Date: 20220905
  Receipt Date: 20230209
  Transmission Date: 20230418
  Serious: Yes (Other)
  Sender: FDA-Public Use
  Company Number: CA-ANIPHARMA-2022-CA-001761

PATIENT
  Age: 79 Year
  Sex: Female

DRUGS (5)
  1. CANDESARTAN CILEXETIL [Suspect]
     Active Substance: CANDESARTAN CILEXETIL
     Indication: Hypertension
     Dosage: 8 ML QD
     Route: 048
  2. ELIQUIS [Concomitant]
     Active Substance: APIXABAN
     Dosage: 1 DF BID
     Route: 048
  3. DESOXIMETASONE [Concomitant]
     Active Substance: DESOXIMETASONE
     Route: 065
     Dates: start: 202201
  4. MONTELUKAST [Suspect]
     Active Substance: MONTELUKAST SODIUM
     Dosage: 10 MG DAILY
     Route: 048
  5. BILASTINE [Concomitant]
     Active Substance: BILASTINE
     Dosage: 40 MG BID
     Route: 065

REACTIONS (4)
  - COVID-19 [Unknown]
  - Oxygen saturation decreased [Unknown]
  - Urticaria [Unknown]
  - Therapeutic response decreased [Unknown]
